FAERS Safety Report 22525378 (Version 1)
Quarter: 2023Q2

REPORT INFORMATION
  Report Type: Report from Study
  Country: IT (occurrence: IT)
  Receive Date: 20230606
  Receipt Date: 20230606
  Transmission Date: 20230721
  Serious: Yes (Hospitalization, Other)
  Sender: FDA-Public Use
  Company Number: None

PATIENT
  Age: 5 Year
  Sex: Male
  Weight: 22 kg

DRUGS (4)
  1. BORTEZOMIB [Suspect]
     Active Substance: BORTEZOMIB
     Indication: Acute myeloid leukaemia
     Dosage: 1.17 MILLIGRAM,CYCLIC THERAPY
     Route: 042
     Dates: start: 20221018, end: 20221027
  2. METHOTREXATE [Suspect]
     Active Substance: METHOTREXATE
     Indication: Product used for unknown indication
     Dosage: 4500 MILLIGRAM (4500MG, CYCLIC THERAPY)
     Route: 042
     Dates: start: 20221228, end: 20230209
  3. CYCLOPHOSPHAMIDE [Suspect]
     Active Substance: CYCLOPHOSPHAMIDE
     Indication: Product used for unknown indication
     Dosage: 900 MILLIGRAM (900 MG, CYCLIC THERAPY)
     Route: 042
     Dates: start: 20221110, end: 20221128
  4. VINCRISTINE [Suspect]
     Active Substance: VINCRISTINE
     Indication: Product used for unknown indication
     Dosage: 1.30 MILLIGRAM, CYCLIC THERAPY
     Route: 042
     Dates: start: 20221018, end: 20221027

REACTIONS (5)
  - Electrocardiogram QT prolonged [Recovered/Resolved with Sequelae]
  - Neutropenia [Recovered/Resolved]
  - Pruritus [Recovered/Resolved]
  - Mucosal inflammation [Recovering/Resolving]
  - Headache [Recovered/Resolved]

NARRATIVE: CASE EVENT DATE: 20221018
